FAERS Safety Report 6508264-5 (Version None)
Quarter: 2009Q4

REPORT INFORMATION
  Report Type: 
  Country: None (occurrence: None)
  Receive Date: 20091221
  Receipt Date: 20090331
  Transmission Date: 20100525
  Serious: No
  Sender: FDA-Public Use
  Company Number: US-ASTRAZENECA-2006UW21713

PATIENT
  Age: 87 Year
  Sex: Female
  Weight: 54 kg

DRUGS (10)
  1. CRESTOR [Suspect]
     Indication: BLOOD CHOLESTEROL INCREASED
     Route: 048
     Dates: start: 20070101
  2. CRESTOR [Suspect]
     Indication: HYPERTRIGLYCERIDAEMIA
     Route: 048
     Dates: start: 20070101
  3. CRESTOR [Suspect]
     Route: 048
     Dates: start: 20090303
  4. CRESTOR [Suspect]
     Route: 048
     Dates: start: 20090303
  5. PLAVIX [Concomitant]
  6. COREG [Concomitant]
  7. LASIX [Concomitant]
  8. DIGOXIN [Concomitant]
  9. VIOXX [Concomitant]
  10. TRAMADOL HCL [Concomitant]

REACTIONS (7)
  - ABDOMINAL DISCOMFORT [None]
  - ANXIETY [None]
  - CONSTIPATION [None]
  - DIZZINESS [None]
  - DRUG INEFFECTIVE [None]
  - NAUSEA [None]
  - NIGHTMARE [None]
